FAERS Safety Report 9471090 (Version 1)
Quarter: 2013Q3

REPORT INFORMATION
  Report Type: Spontaneous
  Country: US (occurrence: US)
  Receive Date: 20130822
  Receipt Date: 20130822
  Transmission Date: 20140515
  Serious: Yes (Other)
  Sender: FDA-Public Use
  Company Number: US-AMGEN-USASP2013057818

PATIENT
  Age: 61 Year
  Sex: Male

DRUGS (10)
  1. ENBREL [Suspect]
     Indication: PRODUCT USED FOR UNKNOWN INDICATION
     Dosage: 50 MG, QWK
     Route: 058
  2. PREDNISONE [Concomitant]
     Dosage: 5 MG, UNK
  3. NABUMETONE [Concomitant]
     Dosage: 750 MG, UNK
  4. OMEPRAZOLE [Concomitant]
     Dosage: 20 MG, UNK
  5. CRESTOR [Concomitant]
     Dosage: 5 MG, UNK
  6. ALLOPURINOL [Concomitant]
     Dosage: 100 MG, UNK
  7. MULTIVITAMINS, PLAIN [Concomitant]
     Dosage: UNK
  8. COQ 10 [Concomitant]
     Dosage: UNK
  9. FISH OIL [Concomitant]
     Dosage: UNK
  10. FLAXSEED OIL [Concomitant]
     Dosage: UNK

REACTIONS (3)
  - Cellulitis [Unknown]
  - Drug ineffective [Unknown]
  - Mass [Unknown]
